APPROVED DRUG PRODUCT: METHADONE HYDROCHLORIDE
Active Ingredient: METHADONE HYDROCHLORIDE
Strength: 40MG
Dosage Form/Route: TABLET;ORAL
Application: A074081 | Product #001
Applicant: ROXANE LABORATORIES INC
Approved: Apr 28, 1995 | RLD: No | RS: No | Type: DISCN